FAERS Safety Report 8721207 (Version 2)
Quarter: 2013Q2

REPORT INFORMATION
  Report Type: Spontaneous
  Country: JP (occurrence: JP)
  Receive Date: 20120813
  Receipt Date: 20130501
  Transmission Date: 20140414
  Serious: Yes (Life-Threatening, Other)
  Sender: FDA-Public Use
  Company Number: JP-PFIZER INC-2012193293

PATIENT
  Age: 70 Year
  Sex: 0
  Weight: 60 kg

DRUGS (1)
  1. FOSPHENYTOIN SODIUM [Suspect]
     Indication: STATUS EPILEPTICUS
     Dosage: 15 ML, SINGLE
     Route: 042
     Dates: start: 20120806, end: 20120806

REACTIONS (2)
  - Blood pressure decreased [Recovered/Resolved]
  - Respiratory arrest [Unknown]
